FAERS Safety Report 5573804-X (Version None)
Quarter: 2007Q4

REPORT INFORMATION
  Report Type: 
  Country: None (occurrence: None)
  Receive Date: 20071226
  Receipt Date: 20071214
  Transmission Date: 20080405
  Serious: Yes (Other)
  Sender: FDA-Public Use
  Company Number: AU-PFIZER INC-2007096084

PATIENT
  Sex: Female

DRUGS (2)
  1. LYRICA [Suspect]
     Indication: FIBROMYALGIA
     Dates: start: 20071109, end: 20071207
  2. CONTRACEPTIVE, UNSPECIFIED [Concomitant]

REACTIONS (27)
  - ABDOMINAL PAIN [None]
  - BALANCE DISORDER [None]
  - BLOOD UREA DECREASED [None]
  - CHEST PAIN [None]
  - DEHYDRATION [None]
  - DIARRHOEA [None]
  - DIZZINESS [None]
  - DRUG INEFFECTIVE [None]
  - ELECTROLYTE IMBALANCE [None]
  - FATIGUE [None]
  - FEELING ABNORMAL [None]
  - GASTROOESOPHAGEAL REFLUX DISEASE [None]
  - HAEMATOCRIT DECREASED [None]
  - HAEMATURIA [None]
  - HEADACHE [None]
  - HYPOAESTHESIA [None]
  - HYPOTENSION [None]
  - INSOMNIA [None]
  - KETONURIA [None]
  - LIVER FUNCTION TEST ABNORMAL [None]
  - MEAN CELL VOLUME INCREASED [None]
  - NECK PAIN [None]
  - NIGHTMARE [None]
  - RED CELL DISTRIBUTION WIDTH DECREASED [None]
  - SOMNOLENCE [None]
  - SWELLING [None]
  - TINNITUS [None]
